FAERS Safety Report 8840439 (Version 4)
Quarter: 2014Q3

REPORT INFORMATION
  Report Type: Spontaneous
  Country: US (occurrence: US)
  Receive Date: 20121015
  Receipt Date: 20140728
  Transmission Date: 20150326
  Serious: Yes (Hospitalization, Disabling, Other)
  Sender: FDA-Public Use
  Company Number: US-009507513-1210USA003151

PATIENT
  Sex: Female
  Weight: 53.52 kg

DRUGS (3)
  1. FOSAMAX [Suspect]
     Active Substance: ALENDRONATE SODIUM
     Indication: OSTEOPOROSIS
     Dosage: 70 MG, UNK
     Route: 048
     Dates: start: 2001
  2. ALENDRONATE SODIUM. [Suspect]
     Active Substance: ALENDRONATE SODIUM
     Dosage: 70 MG, UNK
  3. HORMONES (UNSPECIFIED) [Concomitant]
     Active Substance: UNSPECIFIED INGREDIENT
     Dosage: UNK
     Dates: start: 2000, end: 2003

REACTIONS (36)
  - Intramedullary rod insertion [Unknown]
  - Appendicectomy [Unknown]
  - Cor pulmonale chronic [Not Recovered/Not Resolved]
  - Tricuspid valve incompetence [Unknown]
  - Femur fracture [Recovering/Resolving]
  - Spinal osteoarthritis [Unknown]
  - Urinary incontinence [Unknown]
  - Irritable bowel syndrome [Unknown]
  - Anaemia [Unknown]
  - Thoracic outlet syndrome [Unknown]
  - Migraine [Unknown]
  - Femur fracture [Recovering/Resolving]
  - Hypertension [Unknown]
  - Pulmonary hypertension [Unknown]
  - Hernia hiatus repair [Unknown]
  - Peptic ulcer [Unknown]
  - Gastritis [Unknown]
  - Thoracic outlet surgery [Unknown]
  - Cystopexy [Unknown]
  - Electrocardiogram PR shortened [Unknown]
  - Electrocardiogram ST segment abnormal [Unknown]
  - Lung infiltration [Unknown]
  - Left ventricular hypertrophy [Unknown]
  - Mitral valve disease [Unknown]
  - Right atrial dilatation [Unknown]
  - Aortic valve incompetence [Unknown]
  - Fracture nonunion [Unknown]
  - Hiatus hernia [Unknown]
  - Atelectasis [Unknown]
  - Pleural effusion [Unknown]
  - Rotator cuff repair [Unknown]
  - Intramedullary rod insertion [Unknown]
  - Pulmonary fibrosis [Unknown]
  - Aortic arteriosclerosis [Unknown]
  - Diastolic dysfunction [Unknown]
  - Arrhythmia [Unknown]

NARRATIVE: CASE EVENT DATE: 200104
